FAERS Safety Report 6654549-1 (Version None)
Quarter: 2010Q1

REPORT INFORMATION
  Report Type: 
  Country: None (occurrence: None)
  Receive Date: 20100326
  Receipt Date: 20100318
  Transmission Date: 20100710
  Serious: Yes (Disabling, Other)
  Sender: FDA-Public Use
  Company Number: IE-PFIZER INC-2010023101

PATIENT
  Age: 65 Year
  Sex: Male

DRUGS (17)
  1. LIPITOR [Suspect]
     Indication: BLOOD CHOLESTEROL
     Dosage: 40 MG, 1X/DAY
  2. LIPITOR [Suspect]
     Dosage: 20 MG, 1X/DAY
  3. LYRICA [Concomitant]
     Indication: FIBROMYALGIA
     Dosage: 200 MG, 2X/DAY
  4. CO-Q-10 [Concomitant]
     Dosage: UNK
  5. ACETYLSALICYLIC ACID [Concomitant]
  6. DIOVAN HCT [Concomitant]
     Dosage: 160 MG, UNK
  7. OMACOR [Concomitant]
     Dosage: 1000 MG, 2X/DAY
  8. NAPROSYN [Concomitant]
     Indication: FIBROMYALGIA
     Dosage: 500 MG, 2X/DAY
  9. TRAMADOL HCL [Concomitant]
     Dosage: 100 MG, 2X/DAY
  10. MIRTAZAPINE [Concomitant]
     Indication: SLEEP DISORDER
     Dosage: 30 MG, 1X/DAY
  11. VALIUM [Concomitant]
     Indication: SLEEP DISORDER
     Dosage: 5 MG, 1X/DAY AT NIGHT
  12. PROTHIADEN [Concomitant]
     Indication: SLEEP DISORDER
     Dosage: 25 MG, UNK
  13. PROTHIADEN [Concomitant]
     Indication: FIBROMYALGIA
  14. AMITRIPTYLINE [Concomitant]
     Indication: SLEEP DISORDER
     Dosage: 25 MG, 1X/DAY AT NIGHT
  15. AMITRIPTYLINE [Concomitant]
     Indication: FIBROMYALGIA
  16. STILNOCT [Concomitant]
     Indication: SLEEP DISORDER
     Dosage: 20 MG, 1X/DAY AT NIGHT
  17. STILNOCT [Concomitant]
     Indication: FIBROMYALGIA

REACTIONS (10)
  - ANTISOCIAL BEHAVIOUR [None]
  - ARTHRALGIA [None]
  - ARTHROPATHY [None]
  - BLOOD CHOLESTEROL INCREASED [None]
  - C-REACTIVE PROTEIN INCREASED [None]
  - CONNECTIVE TISSUE DISORDER [None]
  - DYSKINESIA [None]
  - HYPOAESTHESIA [None]
  - MYALGIA [None]
  - PARAESTHESIA [None]
